FAERS Safety Report 8170892-1 (Version None)
Quarter: 2012Q1

REPORT INFORMATION
  Report Type: 
  Country: None (occurrence: None)
  Receive Date: 20120104
  Receipt Date: 20111115
  Transmission Date: 20120608
  Serious: No
  Sender: FDA-Public Use
  Company Number: 2011HGS-002803

PATIENT
  Age: 28 Year
  Sex: Female
  Weight: 50.8029 kg

DRUGS (4)
  1. EFFEXOR [Concomitant]
  2. BENLYSTA [Suspect]
     Indication: SYSTEMIC LUPUS ERYTHEMATOSUS
     Dosage: 1 IN 28 D, INTRAVENOUS DRIP
     Route: 041
     Dates: start: 20110901
  3. METHOTREXATE [Concomitant]
  4. CELLCEPT [Concomitant]

REACTIONS (5)
  - MUSCLE SPASMS [None]
  - NAUSEA [None]
  - VOMITING [None]
  - HEADACHE [None]
  - PHOTOPHOBIA [None]
